FAERS Safety Report 18179674 (Version 1)
Quarter: 2020Q3

REPORT INFORMATION
  Report Type: Spontaneous
  Country: CN (occurrence: CN)
  Receive Date: 20200820
  Receipt Date: 20200820
  Transmission Date: 20201103
  Serious: Yes (Other)
  Sender: FDA-Public Use
  Company Number: CN-BAXTER-2020BAX016769

PATIENT
  Age: 54 Year
  Sex: Female
  Weight: 60 kg

DRUGS (9)
  1. 5% GLUCOSE  INJECTION [Suspect]
     Active Substance: DEXTROSE
     Dosage: DOSE?REINTRODUCED
     Route: 041
     Dates: start: 20200713
  2. FEMININE [Suspect]
     Active Substance: POVIDONE-IODINE
     Dosage: DOSE?REINTRODUCED
     Route: 041
     Dates: start: 20200713
  3. FEMININE [Suspect]
     Active Substance: POVIDONE-IODINE
     Indication: CHEMOTHERAPY
     Dosage: 1?5 COURSES
     Route: 041
  4. XELODA [Suspect]
     Active Substance: CAPECITABINE
     Dosage: TABLET, DOSE?REINTRODUCED
     Route: 048
     Dates: start: 20200713
  5. XELODA [Suspect]
     Active Substance: CAPECITABINE
     Indication: COLON CANCER
     Dosage: TABLET, 1?5 COURSES
     Route: 048
  6. 5% GLUCOSE  INJECTION [Suspect]
     Active Substance: DEXTROSE
     Indication: MEDICATION DILUTION
     Dosage: 1?5 COURSES
     Route: 041
  7. 5% GLUCOSE  INJECTION [Suspect]
     Active Substance: DEXTROSE
     Dosage: 6TH COURSE
     Route: 041
     Dates: start: 20200624, end: 20200624
  8. FEMININE [Suspect]
     Active Substance: POVIDONE-IODINE
     Indication: COLON CANCER
     Dosage: 6TH COURSE
     Route: 041
     Dates: start: 20200624, end: 20200624
  9. XELODA [Suspect]
     Active Substance: CAPECITABINE
     Indication: CHEMOTHERAPY
     Dosage: TABLET, 6TH COURSE
     Route: 048
     Dates: start: 20200624, end: 20200708

REACTIONS (1)
  - Neutropenia [Recovering/Resolving]

NARRATIVE: CASE EVENT DATE: 20200713
